FAERS Safety Report 9983506 (Version 1)
Quarter: 2014Q1

REPORT INFORMATION
  Report Type: Report from Study
  Country: US (occurrence: US)
  Receive Date: 20140307
  Receipt Date: 20140307
  Transmission Date: 20141002
  Serious: Yes (Life-Threatening, Hospitalization, Other)
  Sender: FDA-Public Use
  Company Number: US-JNJFOC-20140303865

PATIENT
  Age: 14 Year
  Sex: Female
  Weight: 67.8 kg

DRUGS (6)
  1. REMICADE [Suspect]
     Indication: COLITIS
     Route: 042
     Dates: start: 20091221
  2. VITAMIN D [Concomitant]
     Route: 065
  3. LEXAPRO [Concomitant]
     Route: 065
  4. FERROUS SULFATE [Concomitant]
     Route: 065
  5. HUMALOG INSULIN [Concomitant]
     Route: 065
  6. 5-ASA [Concomitant]
     Route: 048

REACTIONS (1)
  - Suicidal ideation [Recovered/Resolved]
